FAERS Safety Report 23282055 (Version 1)
Quarter: 2023Q4

REPORT INFORMATION
  Report Type: Spontaneous
  Country: US (occurrence: None)
  Receive Date: 20231208
  Receipt Date: 20231208
  Transmission Date: 20240109
  Serious: No
  Sender: FDA-Public Use
  Company Number: None

PATIENT
  Age: 27 Year
  Sex: Male
  Weight: 75.6 kg

DRUGS (5)
  1. GAMUNEX-C [Suspect]
     Active Substance: HUMAN IMMUNOGLOBULIN G
     Indication: Autonomic neuropathy
     Route: 042
  2. GAMUNEX-C [Suspect]
     Active Substance: HUMAN IMMUNOGLOBULIN G
     Indication: Autonomic neuropathy
     Route: 042
  3. ACETAMINOPHEN [Concomitant]
     Active Substance: ACETAMINOPHEN
  4. DIPHENHYDRAMINE [Concomitant]
     Active Substance: DIPHENHYDRAMINE
  5. (Solumedrol) 125 mg [Concomitant]

REACTIONS (7)
  - Infusion related reaction [None]
  - Wheezing [None]
  - Somnolence [None]
  - Pruritus [None]
  - Throat irritation [None]
  - Therapy interrupted [None]
  - Rash macular [None]

NARRATIVE: CASE EVENT DATE: 20231129
